FAERS Safety Report 4634278-6 (Version None)
Quarter: 2005Q2

REPORT INFORMATION
  Report Type: 
  Country: None (occurrence: None)
  Receive Date: 20050411
  Receipt Date: 20050331
  Transmission Date: 20051028
  Serious: Yes (Other)
  Sender: FDA-Public Use
  Company Number: 2005047763

PATIENT
  Sex: Male

DRUGS (2)
  1. PHENYTOIN [Suspect]
     Indication: ILL-DEFINED DISORDER
     Dosage: 400 MG (100 MG, 1 IN 1 D), ORAL
     Route: 048
     Dates: start: 20041201
  2. CLOXAZOLAM           (CLOXAZOLAM) [Concomitant]

REACTIONS (1)
  - NO ADVERSE DRUG EFFECT [None]
